FAERS Safety Report 13330614 (Version 2)
Quarter: 2017Q4

REPORT INFORMATION
  Report Type: Spontaneous
  Country: US (occurrence: US)
  Receive Date: 20170314
  Receipt Date: 20171012
  Transmission Date: 20180320
  Serious: No
  Sender: FDA-Public Use
  Company Number: US-TEVA-746809ACC

PATIENT
  Age: 51 Year
  Sex: Male

DRUGS (11)
  1. OXYBUTYNIN. [Concomitant]
     Active Substance: OXYBUTYNIN CHLORIDE
     Dates: start: 19000101
  2. VITAMIN C [Concomitant]
     Active Substance: ASCORBIC ACID
     Dosage: 11 12 2007
  3. COPAXONE [Suspect]
     Active Substance: GLATIRAMER ACETATE
     Indication: MULTIPLE SCLEROSIS
     Route: 058
     Dates: start: 20141222
  4. CRESTOR [Concomitant]
     Active Substance: ROSUVASTATIN CALCIUM
     Dates: start: 20071211
  5. VITAMIN B12 [Concomitant]
     Active Substance: CYANOCOBALAMIN
     Dates: start: 19000101
  6. BACLOFEN. [Concomitant]
     Active Substance: BACLOFEN
     Dates: start: 20071211
  7. ONDANSETRON [Concomitant]
     Active Substance: ONDANSETRON
  8. MUCINEX COLD [Concomitant]
  9. FAMOTIDINE. [Concomitant]
     Active Substance: FAMOTIDINE
  10. NAPROXEN. [Concomitant]
     Active Substance: NAPROXEN
     Dates: start: 20071211
  11. OLANZAPINE. [Concomitant]
     Active Substance: OLANZAPINE

REACTIONS (2)
  - Flushing [Unknown]
  - Tachycardia [Unknown]

NARRATIVE: CASE EVENT DATE: 20170210
